FAERS Safety Report 5282641-5 (Version None)
Quarter: 2007Q1

REPORT INFORMATION
  Report Type: 
  Country: None (occurrence: None)
  Receive Date: 20070331
  Receipt Date: 20070322
  Transmission Date: 20070707
  Serious: Yes (Hospitalization)
  Sender: FDA-Public Use
  Company Number: SK-SHR-SK-2007-010073

PATIENT
  Age: 39 Year
  Sex: Female

DRUGS (2)
  1. BETASERON [Suspect]
     Dosage: UNK, EVERY 2D
     Route: 058
     Dates: start: 20060927, end: 20061001
  2. BETASERON [Suspect]
     Dosage: UNK, EVERY 2D
     Route: 058
     Dates: start: 20060101, end: 20061105

REACTIONS (1)
  - CUTANEOUS VASCULITIS [None]
